FAERS Safety Report 10071287 (Version 2)
Quarter: 2014Q2

REPORT INFORMATION
  Report Type: Spontaneous
  Country: FR (occurrence: FR)
  Receive Date: 20140410
  Receipt Date: 20140516
  Transmission Date: 20141212
  Serious: Yes (Hospitalization)
  Sender: FDA-Public Use
  Company Number: PHHY2014FR041633

PATIENT
  Age: 39 Year
  Sex: Female

DRUGS (9)
  1. VANCOMYCIN SANDOZ [Suspect]
     Indication: INFECTION
     Route: 042
     Dates: start: 20140307, end: 20140317
  2. PARACETAMOL [Suspect]
     Indication: PAIN
     Dosage: 1000 MG, TID
     Route: 048
     Dates: start: 20140307
  3. TAVANIC [Suspect]
     Indication: ANTIBIOTIC PROPHYLAXIS
     Dosage: 500 MG, QD
     Route: 048
     Dates: start: 20140306, end: 20140306
  4. HYDROCORTISONE [Suspect]
     Indication: INFLAMMATION
     Route: 048
     Dates: start: 20140307, end: 20140317
  5. DIFFU-K [Concomitant]
     Indication: PRODUCT USED FOR UNKNOWN INDICATION
  6. KINERET [Concomitant]
     Indication: PRODUCT USED FOR UNKNOWN INDICATION
  7. CORTANCYL [Concomitant]
     Indication: PRODUCT USED FOR UNKNOWN INDICATION
  8. ERYTHROMYCIN [Concomitant]
     Indication: PRODUCT USED FOR UNKNOWN INDICATION
  9. ACICLOVIR [Concomitant]
     Indication: PRODUCT USED FOR UNKNOWN INDICATION

REACTIONS (1)
  - Agranulocytosis [Not Recovered/Not Resolved]
